FAERS Safety Report 14626499 (Version 1)
Quarter: 2018Q1

REPORT INFORMATION
  Report Type: Spontaneous
  Country: US (occurrence: US)
  Receive Date: 20180310
  Receipt Date: 20180310
  Transmission Date: 20180509
  Serious: Yes (Hospitalization)
  Sender: FDA-Public Use
  Company Number: None

PATIENT
  Age: 69 Year

DRUGS (1)
  1. WARFARIN [Suspect]
     Active Substance: WARFARIN
     Indication: ATRIAL FIBRILLATION
     Dates: start: 20170829, end: 20180117

REACTIONS (6)
  - Gastrointestinal haemorrhage [None]
  - Anaemia [None]
  - Diverticulum [None]
  - Gastric haemorrhage [None]
  - Haemorrhoids [None]
  - Gastritis [None]

NARRATIVE: CASE EVENT DATE: 20180117
